FAERS Safety Report 11329337 (Version 1)
Quarter: 2015Q3

REPORT INFORMATION
  Report Type: Spontaneous
  Country: DE (occurrence: DE)
  Receive Date: 20150803
  Receipt Date: 20150803
  Transmission Date: 20151125
  Serious: Yes (Other)
  Sender: FDA-Public Use
  Company Number: DE-DRREDDYS-GER/GER/15/0049691

PATIENT
  Age: 36 Year
  Sex: Female
  Weight: 99 kg

DRUGS (6)
  1. PERAZINE [Suspect]
     Active Substance: PERAZINE
     Indication: ANXIETY DISORDER
     Route: 048
     Dates: start: 20131215, end: 20140822
  2. LEVOTHYROXINE SODIUM. [Concomitant]
     Active Substance: LEVOTHYROXINE SODIUM
     Indication: HYPOTHYROIDISM
     Route: 048
     Dates: start: 20131215, end: 20140822
  3. FOLS?URE [Concomitant]
     Indication: PROPHYLAXIS OF NEURAL TUBE DEFECT
     Route: 048
     Dates: start: 20131215, end: 20140822
  4. VENLAFAXINE [Suspect]
     Active Substance: VENLAFAXINE HYDROCHLORIDE
     Indication: DEPRESSION
     Route: 048
     Dates: start: 20131215, end: 20140822
  5. CLEXANE 40 [Concomitant]
     Indication: FACTOR V DEFICIENCY
     Route: 058
  6. ASS 100 [Concomitant]
     Active Substance: ASPIRIN
     Indication: PROPHYLAXIS
     Route: 048

REACTIONS (2)
  - Exposure during pregnancy [Unknown]
  - Premature labour [Unknown]
